FAERS Safety Report 12397473 (Version 1)
Quarter: 2016Q2

REPORT INFORMATION
  Report Type: Spontaneous
  Country: US (occurrence: None)
  Receive Date: 20160523
  Receipt Date: 20160523
  Transmission Date: 20160815
  Serious: No
  Sender: FDA-Public Use
  Company Number: None

PATIENT
  Age: 54 Year
  Sex: Female

DRUGS (1)
  1. CAPECITABINE 500MG TAB TEVA [Suspect]
     Active Substance: CAPECITABINE
     Indication: RECTAL CANCER
     Dosage: 300MG X 3-1500 AM ?300 MG X 4-2000 PM QD PO
     Route: 048
     Dates: start: 201604

REACTIONS (2)
  - Gastroenteritis viral [None]
  - Diarrhoea [None]

NARRATIVE: CASE EVENT DATE: 2016
